FAERS Safety Report 24668171 (Version 1)
Quarter: 2024Q4

REPORT INFORMATION
  Report Type: Spontaneous
  Country: DE (occurrence: DE)
  Receive Date: 20241127
  Receipt Date: 20241127
  Transmission Date: 20250115
  Serious: Yes (Hospitalization)
  Sender: ROCHE
  Company Number: DE-ROCHE-10000136201

PATIENT
  Sex: Female

DRUGS (1)
  1. VEMURAFENIB [Suspect]
     Active Substance: VEMURAFENIB
     Indication: Hairy cell leukaemia recurrent
     Route: 065

REACTIONS (5)
  - Off label use [Unknown]
  - Drug eruption [Not Recovered/Not Resolved]
  - Leukopenia [Unknown]
  - Mucosal inflammation [Unknown]
  - Headache [Unknown]
